FAERS Safety Report 16850761 (Version 1)
Quarter: 2019Q3

REPORT INFORMATION
  Report Type: Spontaneous
  Country: US (occurrence: US)
  Receive Date: 20190925
  Receipt Date: 20190925
  Transmission Date: 20191005
  Serious: No
  Sender: FDA-Public Use
  Company Number: US-THERAPEUTICSMD-2019TMD02047

PATIENT
  Age: 76 Year
  Sex: Female
  Weight: 53.06 kg

DRUGS (1)
  1. IMVEXXY [Suspect]
     Active Substance: ESTRADIOL
     Dosage: 10 ?G, PRESCRIBED 1X/DAY; USED 2X/WEEK AND/OR 2X/MONTH
     Route: 067
     Dates: start: 20190709, end: 201907

REACTIONS (10)
  - Vulvovaginal burning sensation [Recovering/Resolving]
  - Bladder irritation [Unknown]
  - Product residue present [Recovered/Resolved]
  - Product solubility abnormal [Recovered/Resolved]
  - Vulvovaginal injury [Not Recovered/Not Resolved]
  - Intentional product misuse [Recovered/Resolved]
  - Cyst [Unknown]
  - Discomfort [Unknown]
  - Vulvovaginal discomfort [Recovering/Resolving]
  - Blood urine present [Unknown]

NARRATIVE: CASE EVENT DATE: 201907
